FAERS Safety Report 17065180 (Version 1)
Quarter: 2019Q4

REPORT INFORMATION
  Report Type: Spontaneous
  Country: CA (occurrence: CA)
  Receive Date: 20191122
  Receipt Date: 20191122
  Transmission Date: 20200122
  Serious: Yes (Disabling, Other)
  Sender: FDA-Public Use
  Company Number: CA-ASTRAZENECA-2019SE22677

PATIENT
  Age: 26976 Day
  Sex: Male

DRUGS (2)
  1. FORXIGA [Suspect]
     Active Substance: DAPAGLIFLOZIN
     Indication: DIABETES MELLITUS
     Dosage: 5-10MG
     Route: 048
     Dates: start: 20160127, end: 20190205
  2. FORXIGA [Suspect]
     Active Substance: DAPAGLIFLOZIN
     Indication: CORONARY ARTERY DISEASE
     Dosage: 5-10MG
     Route: 048
     Dates: start: 20160127, end: 20190205

REACTIONS (1)
  - Bladder cancer [Not Recovered/Not Resolved]

NARRATIVE: CASE EVENT DATE: 20170418
